FAERS Safety Report 12984739 (Version 1)
Quarter: 2016Q4

REPORT INFORMATION
  Report Type: Spontaneous
  Country: US (occurrence: US)
  Receive Date: 20161129
  Receipt Date: 20161129
  Transmission Date: 20170207
  Serious: Yes (Hospitalization)
  Sender: FDA-Public Use
  Company Number: US-ACTELION-A-US2016-146050

PATIENT
  Age: 40 Year
  Sex: Female

DRUGS (2)
  1. VALCHLOR [Suspect]
     Active Substance: MECHLORETHAMINE
     Indication: MYCOSIS FUNGOIDES
     Dosage: UNK, THIN FILM TO AFFECTED AREAS, WEEKLY TITRATE FREQUENCY OVER 2 MONTHS; ALTERNATE WITH CLOBETASOL
     Route: 061
     Dates: start: 20161026
  2. CLOBETASOL PROPIONATE. [Concomitant]
     Active Substance: CLOBETASOL PROPIONATE

REACTIONS (1)
  - Tumour excision [Unknown]
